FAERS Safety Report 9049943 (Version 1)
Quarter: 2013Q1

REPORT INFORMATION
  Report Type: Report from Study
  Country: US (occurrence: US)
  Receive Date: 20130205
  Receipt Date: 20130205
  Transmission Date: 20140127
  Serious: Yes (Life-Threatening, Hospitalization)
  Sender: FDA-Public Use
  Company Number: US-SHIRE-SPV1-2009-00864

PATIENT
  Age: 8 None
  Sex: Male
  Weight: 26.4 kg

DRUGS (3)
  1. IDURSULFASE [Suspect]
     Indication: MUCOPOLYSACCHARIDOSIS II
     Dosage: 0.5 MG/KG, UNKNOWN
     Route: 041
  2. LORATADINE [Concomitant]
     Indication: PREMEDICATION
     Dosage: 10 MG, UNKNOWN
     Route: 065
     Dates: start: 20070313
  3. PARACETAMOL [Concomitant]
     Indication: PREMEDICATION
     Dosage: 26 MG, UNKNOWN
     Route: 065
     Dates: start: 20070306

REACTIONS (2)
  - Respiratory distress [Recovered/Resolved with Sequelae]
  - Hypoxia [Recovered/Resolved with Sequelae]
